FAERS Safety Report 4409927-8 (Version None)
Quarter: 2004Q3

REPORT INFORMATION
  Report Type: 
  Country: None (occurrence: None)
  Receive Date: 20040728
  Receipt Date: 20040705
  Transmission Date: 20050211
  Serious: Yes (Hospitalization)
  Sender: FDA-Public Use
  Company Number: JP-GLAXOSMITHKLINE-B0338380A

PATIENT
  Age: 6 Month
  Sex: Male

DRUGS (4)
  1. ALKERAN [Suspect]
     Indication: BONE MARROW CONDITIONING REGIMEN
     Dosage: 10MGK CYCLIC
     Route: 042
     Dates: start: 20010419, end: 20010427
  2. THIOTEPA [Suspect]
     Indication: STEM CELL TRANSPLANT
     Dosage: 26MGK CYCLIC
     Route: 065
     Dates: start: 20010419, end: 20010427
  3. KYTRIL [Concomitant]
     Indication: NAUSEA
     Dosage: 1MG PER DAY
     Route: 042
     Dates: start: 20010426, end: 20010429
  4. CEFOTIAM HYDROCHLORIDE [Concomitant]
     Indication: INFECTION
     Dosage: 400MG PER DAY
     Route: 042
     Dates: start: 20010428, end: 20010504

REACTIONS (2)
  - OSTEOLYSIS [None]
  - OSTEOMYELITIS [None]
